FAERS Safety Report 15751045 (Version 1)
Quarter: 2018Q4

REPORT INFORMATION
  Report Type: Spontaneous
  Country: US (occurrence: US)
  Receive Date: 20181221
  Receipt Date: 20181221
  Transmission Date: 20190205
  Serious: No
  Sender: FDA-Public Use
  Company Number: US-THERAPEUTICSMD-2018TMD00329

PATIENT
  Age: 70 Year
  Sex: Female
  Weight: 79.37 kg

DRUGS (9)
  1. FISH OIL [Concomitant]
     Active Substance: FISH OIL
  2. ESTER C [Concomitant]
     Active Substance: ASCORBIC ACID
  3. IMVEXXY [Suspect]
     Active Substance: ESTRADIOL
     Indication: ATROPHIC VULVOVAGINITIS
     Dosage: 10 ?G, 2X/WEEK
     Route: 067
     Dates: start: 20181107
  4. UNSPECIFIED VITAMINS [Concomitant]
     Active Substance: VITAMINS
  5. CALCIUM [Concomitant]
     Active Substance: CALCIUM
  6. VITAMIN D [Concomitant]
     Active Substance: CHOLECALCIFEROL
  7. IMVEXXY [Suspect]
     Active Substance: ESTRADIOL
     Indication: VULVOVAGINAL DRYNESS
  8. BIOTIN [Concomitant]
     Active Substance: BIOTIN
  9. SUMATRIPTAN. [Concomitant]
     Active Substance: SUMATRIPTAN
     Dosage: 25 MG, AS NEEDED WHEN I FEEL A HEADACHE COMING ON
     Route: 067

REACTIONS (3)
  - Off label use [Not Recovered/Not Resolved]
  - Abdominal pain lower [Recovered/Resolved]
  - Headache [Recovered/Resolved]

NARRATIVE: CASE EVENT DATE: 20181107
